FAERS Safety Report 13961977 (Version 5)
Quarter: 2022Q1

REPORT INFORMATION
  Report Type: Spontaneous
  Country: GB (occurrence: GB)
  Receive Date: 20170912
  Receipt Date: 20220328
  Transmission Date: 20220423
  Serious: Yes (Other)
  Sender: FDA-Public Use
  Company Number: GB-MLMSERVICE-20170831-0869940-1

PATIENT
  Sex: Male

DRUGS (3)
  1. DEXAMETHASONE [Suspect]
     Active Substance: DEXAMETHASONE
     Indication: Haemophagocytic lymphohistiocytosis
     Dosage: TWICE WEEKLY, CYCLICAL
     Route: 065
  2. ETOPOSIDE [Suspect]
     Active Substance: ETOPOSIDE
     Indication: Haemophagocytic lymphohistiocytosis
     Dosage: TWICE WEEKLY, CYCLICAL
     Route: 065
  3. CYCLOSPORINE [Suspect]
     Active Substance: CYCLOSPORINE
     Indication: Haemophagocytic lymphohistiocytosis
     Dosage: TWICE WEEKLY, CYCLICAL
     Route: 065

REACTIONS (4)
  - Enterococcal infection [Recovering/Resolving]
  - Staphylococcal infection [Recovering/Resolving]
  - Respiratory syncytial virus infection [Recovering/Resolving]
  - Therapy partial responder [Unknown]
